FAERS Safety Report 11851926 (Version 1)
Quarter: 2015Q4

REPORT INFORMATION
  Report Type: Spontaneous
  Country: IT (occurrence: IT)
  Receive Date: 20151218
  Receipt Date: 20151218
  Transmission Date: 20160305
  Serious: Yes (Hospitalization)
  Sender: FDA-Public Use
  Company Number: IT-ABBVIE-15P-083-1522626-00

PATIENT
  Age: 49 Year
  Sex: Male

DRUGS (4)
  1. LEXOTAN [Suspect]
     Active Substance: BROMAZEPAM
     Indication: INTENTIONAL SELF-INJURY
     Route: 048
     Dates: start: 20150502, end: 20150502
  2. ZYPADHERA [Concomitant]
     Active Substance: OLANZAPINE PAMOATE
     Indication: PRODUCT USED FOR UNKNOWN INDICATION
     Dates: start: 20140101, end: 20150502
  3. DEPAKENE [Suspect]
     Active Substance: VALPROIC ACID
     Indication: PSYCHOTIC DISORDER
     Dosage: EXTENDED RELEASE
     Route: 048
     Dates: start: 20140101, end: 20150502
  4. RIVOTRIL [Suspect]
     Active Substance: CLONAZEPAM
     Indication: ANXIETY
     Route: 048
     Dates: start: 20140101, end: 20150502

REACTIONS (2)
  - Overdose [Unknown]
  - Intentional self-injury [Recovered/Resolved]

NARRATIVE: CASE EVENT DATE: 20150502
